FAERS Safety Report 22211317 (Version 1)
Quarter: 2023Q2

REPORT INFORMATION
  Report Type: Report from Study
  Country: EG (occurrence: EG)
  Receive Date: 20230414
  Receipt Date: 20230414
  Transmission Date: 20230722
  Serious: Yes (Life-Threatening, Hospitalization)
  Sender: FDA-Public Use
  Company Number: EG-002147023-NVSC2023EG085612

PATIENT
  Age: 68 Year
  Sex: Female

DRUGS (3)
  1. ENTRESTO [Suspect]
     Active Substance: SACUBITRIL\VALSARTAN
     Indication: Cardiac failure
     Dosage: 0.5 DOSAGE FORM, QD (MORNING)
     Route: 048
     Dates: start: 20221015, end: 20221128
  2. ENTRESTO [Suspect]
     Active Substance: SACUBITRIL\VALSARTAN
     Dosage: 0.5 DOSAGE FORM, BID
     Route: 048
     Dates: start: 20221128
  3. DAFLON [Concomitant]
     Indication: Capillary disorder
     Dosage: 1 DOSAGE FORM, BID (JAN OR FEB 2022)
     Route: 048
     Dates: start: 2022

REACTIONS (11)
  - Cough [Recovering/Resolving]
  - Fluid retention [Recovering/Resolving]
  - Renal impairment [Recovering/Resolving]
  - Oedema peripheral [Recovering/Resolving]
  - Alopecia [Unknown]
  - Asthenia [Unknown]
  - Ill-defined disorder [Recovering/Resolving]
  - Erythema [Recovering/Resolving]
  - Hypersensitivity [Recovering/Resolving]
  - Product use issue [Recovered/Resolved]
  - Wrong technique in product usage process [Not Recovered/Not Resolved]

NARRATIVE: CASE EVENT DATE: 20221001
